FAERS Safety Report 23748839 (Version 1)
Quarter: 2024Q2

REPORT INFORMATION
  Report Type: Spontaneous
  Country: FR (occurrence: FR)
  Receive Date: 20240416
  Receipt Date: 20240416
  Transmission Date: 20240715
  Serious: Yes (Other)
  Sender: FDA-Public Use
  Company Number: None

PATIENT
  Age: 33 Year
  Sex: Female
  Weight: 68 kg

DRUGS (2)
  1. SPIRONOLACTONE [Suspect]
     Active Substance: SPIRONOLACTONE
     Indication: Heavy menstrual bleeding
     Dosage: 1 TABLET IN THE MORNING, QD
     Route: 048
     Dates: start: 20240308
  2. DROSPIRENONE [Concomitant]
     Active Substance: DROSPIRENONE
     Indication: Contraception
     Dosage: UNK
     Route: 048
     Dates: start: 20240126

REACTIONS (2)
  - Pelvic pain [Not Recovered/Not Resolved]
  - Abnormal menstrual clots [Not Recovered/Not Resolved]

NARRATIVE: CASE EVENT DATE: 20240309
